FAERS Safety Report 5602362-6 (Version None)
Quarter: 2008Q1

REPORT INFORMATION
  Report Type: 
  Country: None (occurrence: None)
  Receive Date: 20080118
  Receipt Date: 20080107
  Transmission Date: 20080703
  Serious: Yes (Other)
  Sender: FDA-Public Use
  Company Number: 2008000575

PATIENT
  Age: 49 Year
  Sex: Female

DRUGS (2)
  1. NASALCROM [Suspect]
     Indication: HYPERSENSITIVITY
     Dosage: 1 SPRAY 2 TIMES A DAY., NASAL
     Route: 045
     Dates: end: 20071217
  2. CLARINEX [Concomitant]

REACTIONS (1)
  - HALLUCINATION, OLFACTORY [None]
